FAERS Safety Report 4616525-X (Version None)
Quarter: 2005Q2

REPORT INFORMATION
  Report Type: 
  Country: None (occurrence: None)
  Receive Date: 20050311
  Receipt Date: 20050201
  Transmission Date: 20051028
  Serious: No
  Sender: FDA-Public Use
  Company Number: 2005-00174

PATIENT
  Age: 78 Year
  Sex: Male

DRUGS (2)
  1. VELCADE [Suspect]
     Dosage: 2.30 MG
  2. THALIDOMIDE [Concomitant]

REACTIONS (1)
  - CONJUNCTIVITIS [None]
